FAERS Safety Report 9244608 (Version 4)
Quarter: 2013Q2

REPORT INFORMATION
  Report Type: Spontaneous
  Country: US (occurrence: US)
  Receive Date: 20130422
  Receipt Date: 20130627
  Transmission Date: 20140414
  Serious: Yes (Other)
  Sender: FDA-Public Use
  Company Number: US-JNJFOC-20130408343

PATIENT
  Sex: Female
  Weight: 113.4 kg

DRUGS (1)
  1. STELARA [Suspect]
     Indication: PSORIASIS
     Dosage: 5 INJECTIONS RECEIVED IN TOTAL
     Route: 058
     Dates: start: 20120223, end: 20121219

REACTIONS (1)
  - Sarcoma [Not Recovered/Not Resolved]
